FAERS Safety Report 5626412-6 (Version None)
Quarter: 2008Q1

REPORT INFORMATION
  Report Type: 
  Country: None (occurrence: None)
  Receive Date: 20080214
  Receipt Date: 20080208
  Transmission Date: 20080703
  Serious: Yes (Disabling)
  Sender: FDA-Public Use
  Company Number: JP-ASTRAZENECA-2007AP00429

PATIENT
  Age: 23212 Day
  Sex: Male
  Weight: 71.3 kg

DRUGS (10)
  1. IRESSA [Suspect]
     Indication: LUNG ADENOCARCINOMA
     Route: 048
     Dates: start: 20061130, end: 20070109
  2. IRESSA [Suspect]
     Indication: NON-SMALL CELL LUNG CANCER
     Route: 048
     Dates: start: 20061130, end: 20070109
  3. IRESSA [Suspect]
     Route: 048
  4. IRESSA [Suspect]
     Route: 048
  5. CISPLATIN [Concomitant]
     Dosage: 6 COURSES
  6. CISPLATIN [Concomitant]
     Dosage: 4 COURSES
  7. IRINOTECAN [Concomitant]
     Dosage: 6 COURSES
  8. GEMCITABINE [Concomitant]
     Dosage: 4 COURSES
  9. CARBOPLATIN [Concomitant]
  10. PACLITAXEL [Concomitant]

REACTIONS (1)
  - PULMONARY ALVEOLAR HAEMORRHAGE [None]
